FAERS Safety Report 8395086-6 (Version None)
Quarter: 2012Q1

REPORT INFORMATION
  Report Type: 
  Country: None (occurrence: None)
  Receive Date: 20120323
  Receipt Date: 20110223
  Transmission Date: 20120608
  Serious: Yes (Other)
  Sender: FDA-Public Use
  Company Number: 163-21880-11030156

PATIENT
  Age: 84 Year
  Sex: Male

DRUGS (10)
  1. ARANESP [Concomitant]
  2. TRIAMCINOLONE [Concomitant]
  3. REVLIMID [Suspect]
     Indication: MYELOFIBROSIS
     Dosage: 2.1429 MG, 3 IN 1 WK, PO ; 1.4286 MG, 2 IN 1 WK, PO ; 1.4286 MG, 2 IN 1 WK, PO
     Route: 048
     Dates: start: 20101210, end: 20110103
  4. REVLIMID [Suspect]
     Indication: MYELOFIBROSIS
     Dosage: 2.1429 MG, 3 IN 1 WK, PO ; 1.4286 MG, 2 IN 1 WK, PO ; 1.4286 MG, 2 IN 1 WK, PO
     Route: 048
     Dates: start: 20100929, end: 20101116
  5. REVLIMID [Suspect]
     Indication: MYELOFIBROSIS
     Dosage: 2.1429 MG, 3 IN 1 WK, PO ; 1.4286 MG, 2 IN 1 WK, PO ; 1.4286 MG, 2 IN 1 WK, PO
     Route: 048
     Dates: start: 20100818
  6. MEDROL [Concomitant]
  7. PREDNISONE TAB [Concomitant]
  8. LASIX [Concomitant]
  9. MEGACE [Concomitant]
  10. LEVOTHYROXINE SODIUM [Concomitant]

REACTIONS (3)
  - PLATELET COUNT DECREASED [None]
  - RASH GENERALISED [None]
  - GOUT [None]
